FAERS Safety Report 15333975 (Version 3)
Quarter: 2019Q1

REPORT INFORMATION
  Report Type: Spontaneous
  Country: US (occurrence: US)
  Receive Date: 20180830
  Receipt Date: 20190201
  Transmission Date: 20190417
  Serious: Yes (Hospitalization, Other)
  Sender: FDA-Public Use
  Company Number: US-ALKERMES INC.-ALK-2018-004624

PATIENT
  Sex: Female

DRUGS (2)
  1. VIVITROL [Suspect]
     Active Substance: NALTREXONE
     Indication: ALCOHOLISM
     Dosage: 380 MG, QMO
     Route: 030
     Dates: start: 20161014
  2. DISULFIRAM. [Concomitant]
     Active Substance: DISULFIRAM
     Indication: PRODUCT USED FOR UNKNOWN INDICATION
     Dosage: 250 MG, QD

REACTIONS (7)
  - Injection site granuloma [Unknown]
  - Necrotising fasciitis [Unknown]
  - Injection site ischaemia [Unknown]
  - Injection site reaction [Unknown]
  - Injection site mass [Unknown]
  - Injection site inflammation [Unknown]
  - Injection site necrosis [Unknown]

NARRATIVE: CASE EVENT DATE: 201611
